FAERS Safety Report 4313481-9 (Version None)
Quarter: 2004Q1

REPORT INFORMATION
  Report Type: 
  Country: None (occurrence: None)
  Receive Date: 20040308
  Receipt Date: 20040129
  Transmission Date: 20041129
  Serious: Yes (Disabling)
  Sender: FDA-Public Use
  Company Number: US-ROCHE-357711

PATIENT
  Age: 63 Year
  Sex: Female

DRUGS (2)
  1. TAMIFLU [Suspect]
     Route: 048
     Dates: start: 20040102, end: 20040106
  2. SYNTHROID [Concomitant]
     Indication: HYPOTHYROIDISM

REACTIONS (3)
  - BLINDNESS UNILATERAL [None]
  - CONJUNCTIVITIS INFECTIVE [None]
  - VITREOUS FLOATERS [None]
